FAERS Safety Report 5335761-0 (Version None)
Quarter: 2007Q2

REPORT INFORMATION
  Report Type: 
  Country: None (occurrence: None)
  Receive Date: 20070322
  Receipt Date: 20070215
  Transmission Date: 20071010
  Serious: No
  Sender: FDA-Public Use
  Company Number: 2007US000406

PATIENT
  Sex: Male

DRUGS (6)
  1. VESICARE [Suspect]
     Indication: DRUG USE FOR UNKNOWN INDICATION
     Dosage: ORAL
     Route: 048
     Dates: start: 20070214
  2. PLAVIX [Concomitant]
  3. AVAPRO [Concomitant]
  4. PRAVACHOL [Concomitant]
  5. ACTOS [Concomitant]
  6. FLOMAX [Concomitant]

REACTIONS (1)
  - CHROMATURIA [None]
